FAERS Safety Report 9631084 (Version 1)
Quarter: 2013Q4

REPORT INFORMATION
  Report Type: Spontaneous
  Country: JP (occurrence: None)
  Receive Date: 20131011
  Receipt Date: 20131011
  Transmission Date: 20140711
  Serious: Yes (Other)
  Sender: FDA-Public Use
  Company Number: 2013P1019916

PATIENT
  Sex: 0

DRUGS (11)
  1. IRINOTECAN [Suspect]
     Indication: NEOPLASM
  2. AMLODIPINE [Suspect]
  3. ALPRAZOLAM [Suspect]
  4. BROMAZEPAM [Suspect]
  5. ETIZOLAM [Suspect]
  6. FERROUS SULFATE [Concomitant]
  7. LANSOPRAZOLE [Concomitant]
  8. LOXOPROFEN [Concomitant]
  9. MORPHINE [Concomitant]
  10. OLMESARTAN [Concomitant]
  11. SULPIRIDE [Concomitant]

REACTIONS (1)
  - Toxicity to various agents [None]
